FAERS Safety Report 17692737 (Version 1)
Quarter: 2020Q2

REPORT INFORMATION
  Report Type: Spontaneous
  Country: CN (occurrence: CN)
  Receive Date: 20200422
  Receipt Date: 20200422
  Transmission Date: 20200714
  Serious: Yes (Hospitalization, Other)
  Sender: FDA-Public Use
  Company Number: CN-BRISTOL-MYERS SQUIBB COMPANY-BMS-2020-032914

PATIENT
  Age: 50 Year
  Sex: Male
  Weight: 71 kg

DRUGS (2)
  1. THYMOPENTIN [Concomitant]
     Active Substance: THYMOPENTIN
     Indication: PRODUCT USED FOR UNKNOWN INDICATION
     Route: 065
  2. BARACLUDE [Suspect]
     Active Substance: ENTECAVIR
     Indication: HEPATITIS B
     Dosage: 1 DOSAGE FORM, QD
     Route: 048
     Dates: start: 2007

REACTIONS (2)
  - Hepatitis B DNA increased [Unknown]
  - Hepatic cirrhosis [Unknown]
